FAERS Safety Report 16858232 (Version 1)
Quarter: 2019Q3

REPORT INFORMATION
  Report Type: Spontaneous
  Country: JP (occurrence: JP)
  Receive Date: 20190926
  Receipt Date: 20190926
  Transmission Date: 20191005
  Serious: Yes (Other)
  Sender: FDA-Public Use
  Company Number: JP-INCYTE CORPORATION-2019IN009652

PATIENT

DRUGS (3)
  1. JAKAVI [Suspect]
     Active Substance: RUXOLITINIB
     Dosage: 15 MG, UNK
     Route: 048
  2. JAKAVI [Suspect]
     Active Substance: RUXOLITINIB
     Indication: MYELOFIBROSIS
     Dosage: 10 MG, UNK
     Route: 048
     Dates: start: 201607
  3. JAKAVI [Suspect]
     Active Substance: RUXOLITINIB
     Dosage: 5 MG, UNK
     Route: 048
     Dates: end: 201806

REACTIONS (13)
  - Malaise [Unknown]
  - Infection [Unknown]
  - Leukopenia [Unknown]
  - Candida infection [Unknown]
  - Neutropenia [Unknown]
  - Myelofibrosis [Unknown]
  - Thrombocytopenia [Unknown]
  - Anaemia [Unknown]
  - Blood creatinine abnormal [Unknown]
  - Lymphopenia [Unknown]
  - Blood bilirubin abnormal [Unknown]
  - Sepsis [Unknown]
  - Aspergillus infection [Unknown]
